FAERS Safety Report 18528279 (Version 3)
Quarter: 2021Q4

REPORT INFORMATION
  Report Type: Spontaneous
  Country: US (occurrence: US)
  Receive Date: 20201120
  Receipt Date: 20211110
  Transmission Date: 20220303
  Serious: No
  Sender: FDA-Public Use
  Company Number: US-PFIZER INC-2020455742

PATIENT
  Age: 52 Year
  Sex: Female

DRUGS (1)
  1. XELJANZ [Suspect]
     Active Substance: TOFACITINIB CITRATE
     Indication: Rheumatoid arthritis
     Dosage: 5 MG, 2X/DAY
     Route: 048
     Dates: start: 2017

REACTIONS (1)
  - Therapeutic response unexpected [Unknown]
